FAERS Safety Report 25321858 (Version 1)
Quarter: 2025Q2

REPORT INFORMATION
  Report Type: Report from Study
  Country: US (occurrence: US)
  Receive Date: 20250516
  Receipt Date: 20250516
  Transmission Date: 20250716
  Serious: Yes (Other)
  Sender: ABBVIE
  Company Number: US-ABBVIE-6248865

PATIENT
  Age: 58 Year
  Sex: Female
  Weight: 83 kg

DRUGS (29)
  1. RINVOQ [Suspect]
     Active Substance: UPADACITINIB
     Indication: Psoriatic arthropathy
     Route: 048
     Dates: start: 20241226, end: 20250121
  2. RINVOQ [Suspect]
     Active Substance: UPADACITINIB
     Indication: Psoriatic arthropathy
     Route: 048
     Dates: start: 20250321
  3. RINVOQ [Suspect]
     Active Substance: UPADACITINIB
     Indication: Psoriatic arthropathy
     Route: 048
     Dates: start: 202411
  4. RINVOQ [Suspect]
     Active Substance: UPADACITINIB
     Indication: Psoriatic arthropathy
     Route: 048
     Dates: start: 20250411
  5. REZDIFFRA [Suspect]
     Active Substance: RESMETIROM
     Indication: Liver function test abnormal
     Route: 048
     Dates: start: 20250110, end: 20250301
  6. REZDIFFRA [Suspect]
     Active Substance: RESMETIROM
     Indication: Liver function test abnormal
     Route: 048
  7. ALBUTEROL [Concomitant]
     Active Substance: ALBUTEROL
     Indication: Asthma
  8. ALLEGRA [Concomitant]
     Active Substance: FEXOFENADINE HYDROCHLORIDE
     Indication: Multiple allergies
  9. ASPIRIN [Concomitant]
     Active Substance: ASPIRIN
     Indication: Hypertension
     Dosage: 82 MG
  10. CARVEDILOL [Concomitant]
     Active Substance: CARVEDILOL
     Indication: Hypertension
     Dosage: 6.25 MG 2X DAY
  11. VITAMIN D [Concomitant]
     Active Substance: VITAMIN D NOS
     Indication: Product used for unknown indication
  12. MOUNJARO [Concomitant]
     Active Substance: TIRZEPATIDE
     Indication: Diabetes mellitus
     Dosage: 1 PEN 1X WEEK
  13. OLMESARTAN MEDOXOMIL [Concomitant]
     Active Substance: OLMESARTAN MEDOXOMIL
     Indication: Hypertension
     Dosage: 20 MG ? 1X DAY
  14. PREDNISONE [Concomitant]
     Active Substance: PREDNISONE
     Indication: Psoriatic arthropathy
  15. Semglee [Concomitant]
     Indication: Diabetes mellitus
     Dosage: VIAL 10ML 65 U/ML
  16. TRAMADOL [Concomitant]
     Active Substance: TRAMADOL
     Indication: Psoriatic arthropathy
  17. TRIAMCINOLONE ACETONIDE [Concomitant]
     Active Substance: TRIAMCINOLONE ACETONIDE
     Indication: Psoriasis
  18. URSODIOL [Concomitant]
     Active Substance: URSODIOL
     Indication: Liver disorder
     Dosage: 500 MG
  19. VITAMIN B12 [Concomitant]
     Active Substance: CYANOCOBALAMIN
     Indication: Product used for unknown indication
  20. CLOBETASOL [Concomitant]
     Active Substance: CLOBETASOL
     Indication: Psoriasis
  21. DICLOFENAC SODIUM [Concomitant]
     Active Substance: DICLOFENAC SODIUM
     Indication: Psoriatic arthropathy
  22. DULOXETINE [Concomitant]
     Active Substance: DULOXETINE
     Indication: Psoriatic arthropathy
     Dosage: 0 MG 1 PILL 1X DAY
  23. FARXIGA [Concomitant]
     Active Substance: DAPAGLIFLOZIN PROPANEDIOL
     Indication: Diabetes mellitus
     Dosage: 10 MG
  24. FISH OIL [Concomitant]
     Active Substance: FISH OIL
     Indication: Blood cholesterol
  25. FLUTICASONE [Concomitant]
     Active Substance: FLUTICASONE
     Indication: Multiple allergies
  26. LINZESS [Concomitant]
     Active Substance: LINACLOTIDE
     Indication: Constipation
  27. METFORMIN [Concomitant]
     Active Substance: METFORMIN HYDROCHLORIDE
     Indication: Diabetes mellitus
     Dosage: 1000 MG 1X TWICE A DAY
  28. METHOCARBAMOL [Concomitant]
     Active Substance: METHOCARBAMOL
     Indication: Psoriatic arthropathy
     Dosage: 500 MG 1X TWICE A DAY
  29. DEVICE [Concomitant]
     Active Substance: DEVICE
     Indication: Psoriatic arthropathy

REACTIONS (31)
  - Pulmonary hypertension [Not Recovered/Not Resolved]
  - Liver function test increased [Recovering/Resolving]
  - Abdominal discomfort [Recovered/Resolved]
  - Drug hypersensitivity [Unknown]
  - Nausea [Unknown]
  - Malaise [Unknown]
  - Eructation [Unknown]
  - Hepatic enzyme increased [Not Recovered/Not Resolved]
  - Osteoarthritis [Not Recovered/Not Resolved]
  - Osteopenia [Not Recovered/Not Resolved]
  - Arthralgia [Not Recovered/Not Resolved]
  - Back pain [Unknown]
  - Pain in extremity [Not Recovered/Not Resolved]
  - Arthralgia [Not Recovered/Not Resolved]
  - Arthralgia [Unknown]
  - Proteinuria [Unknown]
  - Psoriasis [Unknown]
  - Psoriatic arthropathy [Unknown]
  - Uveitis [Not Recovered/Not Resolved]
  - Vitamin D deficiency [Not Recovered/Not Resolved]
  - Hepatic cirrhosis [Unknown]
  - Alpha-1 antitrypsin deficiency [Not Recovered/Not Resolved]
  - Bursitis [Not Recovered/Not Resolved]
  - Ankylosing spondylitis [Not Recovered/Not Resolved]
  - Metabolic dysfunction-associated steatohepatitis [Unknown]
  - Carpal tunnel syndrome [Not Recovered/Not Resolved]
  - Type 2 diabetes mellitus [Not Recovered/Not Resolved]
  - Fatigue [Not Recovered/Not Resolved]
  - Hypertension [Not Recovered/Not Resolved]
  - Hyperuricaemia [Not Recovered/Not Resolved]
  - Iron deficiency anaemia [Not Recovered/Not Resolved]

NARRATIVE: CASE EVENT DATE: 20241001
